FAERS Safety Report 13113325 (Version 2)
Quarter: 2017Q2

REPORT INFORMATION
  Report Type: Report from Study
  Country: TR (occurrence: TR)
  Receive Date: 20170113
  Receipt Date: 20170420
  Transmission Date: 20170830
  Serious: Yes (Death)
  Sender: FDA-Public Use
  Company Number: TR-PFIZER INC-2017009919

PATIENT

DRUGS (3)
  1. MESNA. [Suspect]
     Active Substance: MESNA
     Indication: NASOPHARYNGEAL CANCER
     Dosage: 2500 MG/M2, CYCLIC (DAYS 1-3, REPEATED EVERY 21 DAYS)
  2. DOXORUBICIN HCL [Suspect]
     Active Substance: DOXORUBICIN HYDROCHLORIDE
     Indication: NASOPHARYNGEAL CANCER
     Dosage: 60 MG/M2, CYCLIC (DAY 1, REPEATED EVERY 21 DAYS)
  3. IFOSFAMIDE. [Suspect]
     Active Substance: IFOSFAMIDE
     Indication: NASOPHARYNGEAL CANCER
     Dosage: 2500 MG/M2, CYCLIC (DAYS 1-3, REPEATED EVERY 21 DAYS)

REACTIONS (1)
  - Tumour lysis syndrome [Fatal]
